FAERS Safety Report 17168815 (Version 1)
Quarter: 2019Q4

REPORT INFORMATION
  Report Type: Other
  Country: CA (occurrence: CA)
  Receive Date: 20191218
  Receipt Date: 20191218
  Transmission Date: 20200122
  Serious: Yes (Death, Hospitalization, Other)
  Sender: FDA-Public Use
  Company Number: CA-APOTEX-2019AP025997

PATIENT

DRUGS (8)
  1. IRBESARTAN. [Concomitant]
     Active Substance: IRBESARTAN
     Indication: PRODUCT USED FOR UNKNOWN INDICATION
     Dosage: 300 MG, QD
     Route: 065
  2. ATORVASTATIN [Concomitant]
     Active Substance: ATORVASTATIN
     Indication: PRODUCT USED FOR UNKNOWN INDICATION
     Dosage: 30 MG, QD
     Route: 065
  3. CIPROFLOXACIN. [Concomitant]
     Active Substance: CIPROFLOXACIN
     Indication: PRODUCT USED FOR UNKNOWN INDICATION
     Dosage: 500 MG, QD
     Route: 065
  4. METFORMIN [Suspect]
     Active Substance: METFORMIN HYDROCHLORIDE
     Indication: PRODUCT USED FOR UNKNOWN INDICATION
     Dosage: 500 MG, BID
     Route: 065
  5. METRONIDAZOLE. [Concomitant]
     Active Substance: METRONIDAZOLE
     Indication: PRODUCT USED FOR UNKNOWN INDICATION
     Dosage: 500 MG, TID
     Route: 065
  6. SANDOSTATIN [Suspect]
     Active Substance: OCTREOTIDE ACETATE
     Indication: CARCINOID SYNDROME
     Dosage: UNK (TOTAL)
     Route: 058
  7. SANDOSTATIN [Suspect]
     Active Substance: OCTREOTIDE ACETATE
     Indication: NEUROENDOCRINE TUMOUR
     Dosage: 30 MG, Q.M.T.
     Route: 030
  8. NIFEDIPINE. [Concomitant]
     Active Substance: NIFEDIPINE
     Indication: PRODUCT USED FOR UNKNOWN INDICATION
     Dosage: 90 MG, QD
     Route: 065

REACTIONS (31)
  - Death [Fatal]
  - Cachexia [Fatal]
  - Gallbladder disorder [Fatal]
  - Injection site reaction [Fatal]
  - Weight fluctuation [Fatal]
  - Blood glucose increased [Fatal]
  - Pallor [Fatal]
  - Dehydration [Fatal]
  - Feeling abnormal [Fatal]
  - Gait disturbance [Fatal]
  - Respiratory rate decreased [Fatal]
  - Weight decreased [Fatal]
  - Hair growth abnormal [Fatal]
  - Post procedural bile leak [Fatal]
  - Somnolence [Fatal]
  - Blood glucose decreased [Fatal]
  - Vomiting [Fatal]
  - Blood test abnormal [Fatal]
  - Electrolyte imbalance [Fatal]
  - Injection site mass [Fatal]
  - Fatigue [Fatal]
  - Abdominal pain upper [Fatal]
  - Constipation [Fatal]
  - Dizziness [Fatal]
  - Eating disorder [Fatal]
  - Asthenia [Fatal]
  - Decubitus ulcer [Fatal]
  - Device difficult to use [Fatal]
  - Sleep disorder [Fatal]
  - Renal impairment [Fatal]
  - Injection site pain [Fatal]
